FAERS Safety Report 6741515-0 (Version None)
Quarter: 2010Q2

REPORT INFORMATION
  Report Type: 
  Country: None (occurrence: None)
  Receive Date: 20100520
  Receipt Date: 20091013
  Transmission Date: 20101027
  Serious: Yes (Other)
  Sender: FDA-Public Use
  Company Number: 2006144924

PATIENT
  Age: 34 Year
  Sex: Female
  Weight: 59 kg

DRUGS (8)
  1. DEPO-PROVERA [Suspect]
     Indication: CONTRACEPTION
     Dosage: INTRAMUSCULAR
     Route: 030
     Dates: start: 19950101, end: 20060401
  2. CALCIUM (CALCIUM) [Concomitant]
  3. BASALJEL (ALUMINIUM CARBONATE GEL, BASIC) [Concomitant]
  4. CALCITROL (CALCIUM CARBONATE, ERGOCALCIFEROL, RETINOL) [Concomitant]
  5. TRAZODONE HCL [Concomitant]
  6. POTASSIUM (POTASSIUM) [Concomitant]
  7. TOPAMAX [Concomitant]
  8. WELLBUTRIN [Concomitant]

REACTIONS (1)
  - OSTEOPOROSIS [None]
